FAERS Safety Report 14356619 (Version 3)
Quarter: 2018Q1

REPORT INFORMATION
  Report Type: Report from Study
  Country: US (occurrence: US)
  Receive Date: 20180105
  Receipt Date: 20180125
  Transmission Date: 20180509
  Serious: Yes (Other)
  Sender: FDA-Public Use
  Company Number: US-ARIAD-2017US007566

PATIENT
  Age: 60 Year
  Sex: Female

DRUGS (2)
  1. PONATINIB [Suspect]
     Active Substance: PONATINIB
     Indication: ACUTE LYMPHOCYTIC LEUKAEMIA
     Dosage: 45 MG, QD
     Route: 048
     Dates: start: 20141224, end: 20171106
  2. ELIQUIS [Suspect]
     Active Substance: APIXABAN
     Indication: DEEP VEIN THROMBOSIS
     Dosage: UNK
     Route: 065
     Dates: start: 20171106, end: 20171115

REACTIONS (13)
  - Fatigue [Not Recovered/Not Resolved]
  - Erythema [Unknown]
  - Nasopharyngitis [Unknown]
  - Deep vein thrombosis [Unknown]
  - Fluid retention [Unknown]
  - Oedema peripheral [Unknown]
  - Pain in extremity [Unknown]
  - Skin ulcer [Unknown]
  - Blister [Recovered/Resolved]
  - Asthenia [Unknown]
  - Abdominal discomfort [Unknown]
  - Localised infection [Unknown]
  - Platelet count decreased [Unknown]

NARRATIVE: CASE EVENT DATE: 20170613
